FAERS Safety Report 21405873 (Version 1)
Quarter: 2022Q4

REPORT INFORMATION
  Report Type: Other
  Country: HN (occurrence: HN)
  Receive Date: 20221004
  Receipt Date: 20221004
  Transmission Date: 20230112
  Serious: Yes (Death, Life-Threatening, Hospitalization, Other)
  Sender: FDA-Public Use
  Company Number: HN-TOLMAR, INC.-22HN036743

PATIENT
  Age: 73 Year
  Sex: Male

DRUGS (2)
  1. ELIGARD [Suspect]
     Active Substance: LEUPROLIDE ACETATE
     Indication: Prostate cancer
     Dosage: 22.5 MILLIGRAM, Q 3 MONTH
     Route: 058
  2. ELIGARD [Suspect]
     Active Substance: LEUPROLIDE ACETATE
     Dosage: 22.5 MILLIGRAM, Q 3 MONTH
     Route: 058
     Dates: start: 202206

REACTIONS (5)
  - Prostate cancer [Fatal]
  - Haematochezia [Unknown]
  - Multiple organ dysfunction syndrome [Unknown]
  - Urinary tract infection [Unknown]
  - Urinary retention [Unknown]

NARRATIVE: CASE EVENT DATE: 20220901
